FAERS Safety Report 7517608-7 (Version None)
Quarter: 2011Q2

REPORT INFORMATION
  Report Type: 
  Country: None (occurrence: None)
  Receive Date: 20110601
  Receipt Date: 20110524
  Transmission Date: 20111010
  Serious: Yes (Hospitalization)
  Sender: FDA-Public Use
  Company Number: US-MERCK-1105USA03707

PATIENT
  Age: 49 Year
  Sex: Female

DRUGS (9)
  1. JANUMET [Suspect]
     Indication: DIABETES MELLITUS
     Route: 048
  2. NEXIUM [Concomitant]
     Route: 065
  3. TRAMADOL HYDROCHLORIDE [Concomitant]
     Route: 065
  4. ETODOLAC [Concomitant]
     Route: 065
  5. CYCLOBENZAPRINE HYDROCHLORIDE [Concomitant]
     Route: 065
  6. BENAZEPRIL HYDROCHLORIDE [Concomitant]
     Route: 065
  7. HYDROCODONE [Concomitant]
     Route: 065
  8. CARVEDILOL [Concomitant]
     Route: 065
  9. DRISDOL [Concomitant]
     Route: 065

REACTIONS (1)
  - RHABDOMYOLYSIS [None]
